FAERS Safety Report 20901331 (Version 1)
Quarter: 2022Q2

REPORT INFORMATION
  Report Type: Spontaneous
  Country: US (occurrence: None)
  Receive Date: 20220601
  Receipt Date: 20220601
  Transmission Date: 20220721
  Serious: No
  Sender: FDA-Public Use
  Company Number: None

PATIENT
  Age: 31 Year
  Weight: 55.35 kg

DRUGS (16)
  1. PAXLOVID [Suspect]
     Active Substance: NIRMATRELVIR\RITONAVIR
     Indication: COVID-19
     Dosage: OTHER QUANTITY : 30 TABLET(S);?FREQUENCY : TWICE A DAY;?
     Route: 048
     Dates: start: 20220528, end: 20220601
  2. BACLOFEN [Concomitant]
     Active Substance: BACLOFEN
  3. FAMOTIDINE [Concomitant]
     Active Substance: FAMOTIDINE
  4. NORETHINDRONE [Concomitant]
     Active Substance: NORETHINDRONE
  5. ONDANSETRON [Concomitant]
     Active Substance: ONDANSETRON
  6. HYDROXYZINE [Concomitant]
     Active Substance: HYDROXYZINE HYDROCHLORIDE
  7. ACETAMINOPHEN [Concomitant]
     Active Substance: ACETAMINOPHEN
  8. IBUPROFEN [Concomitant]
     Active Substance: IBUPROFEN
  9. VITAMIN D [Concomitant]
     Active Substance: VITAMIN D NOS
  10. MAGNESIUM OXIDE [Concomitant]
     Active Substance: MAGNESIUM OXIDE
  11. VITAMIN B2 [Concomitant]
     Active Substance: RIBOFLAVIN
  12. MELATONIN [Concomitant]
     Active Substance: MELATONIN
  13. THEONINE [Concomitant]
  14. SAFFRON [Concomitant]
     Active Substance: SAFFRON
  15. VALERIAN [Concomitant]
     Active Substance: VALERIAN
  16. GABA [Concomitant]
     Active Substance: HOMEOPATHICS

REACTIONS (2)
  - Muscular weakness [None]
  - Dizziness [None]

NARRATIVE: CASE EVENT DATE: 20220529
